FAERS Safety Report 5510091-2 (Version None)
Quarter: 2007Q4

REPORT INFORMATION
  Report Type: 
  Country: None (occurrence: None)
  Receive Date: 20071108
  Receipt Date: 20071029
  Transmission Date: 20080405
  Serious: Yes (Hospitalization)
  Sender: FDA-Public Use
  Company Number: 062-C5013-07070156

PATIENT

DRUGS (2)
  1. CC-5013 (LENALIDOMIDE) [Suspect]
     Indication: MULTIPLE MYELOMA
     Dosage: 25 MG, DAY 1-21, ORAL
     Route: 048
     Dates: start: 20070607, end: 20070716
  2. DEXAMETHASONE [Suspect]
     Indication: MULTIPLE MYELOMA
     Dosage: 40 MG, DAY 1-4, 9-12, 17-20
     Dates: start: 20070607, end: 20070716

REACTIONS (2)
  - HERPES ZOSTER [None]
  - SUBILEUS [None]
